FAERS Safety Report 6346125-5 (Version None)
Quarter: 2009Q3

REPORT INFORMATION
  Report Type: 
  Country: None (occurrence: None)
  Receive Date: 20090909
  Receipt Date: 20090627
  Transmission Date: 20100115
  Serious: Yes (Hospitalization, Other)
  Sender: FDA-Public Use
  Company Number: US-PFIZER INC-2009233034

PATIENT
  Age: 19 Year
  Sex: Female
  Weight: 63.1 kg

DRUGS (8)
  1. PREDNISONE TAB [Suspect]
     Dosage: 10 MG, EVERY OTHER DAY (VARYING DOSES SINCE 2006)
     Dates: start: 20060101
  2. SULFASALAZINE [Suspect]
     Dosage: 1000 MG, 2X/DAY
     Dates: start: 20050101
  3. METHOTREXATE SODIUM [Suspect]
     Dosage: 15 MG, ONCE PER WEEK
     Route: 048
     Dates: start: 20050901
  4. FOLIC ACID [Suspect]
     Dosage: 1 MG, 1X/DAY
     Dates: start: 20051001
  5. *ABATACEPT [Suspect]
     Dosage: 750 MG, EVERY 4 WEEKS (HAD JUST RECEIVED 5TH DOSE)
     Dates: start: 20081221
  6. CITRACAL [Suspect]
     Dosage: UNK
     Dates: start: 20070101
  7. ALBUTEROL [Suspect]
     Dosage: LAST USE WAS 2 MONTHS AGO
     Dates: start: 20020101
  8. TYLENOL W/ CODEINE NO. 3 [Concomitant]
     Dosage: #3
     Dates: start: 20091201

REACTIONS (5)
  - ARTHRITIS [None]
  - CONDITION AGGRAVATED [None]
  - CULTURE URINE POSITIVE [None]
  - KLEBSIELLA INFECTION [None]
  - URINARY TRACT INFECTION [None]
